FAERS Safety Report 4796458-9 (Version None)
Quarter: 2005Q3

REPORT INFORMATION
  Report Type: 
  Country: None (occurrence: None)
  Receive Date: 20050916
  Receipt Date: 20041109
  Transmission Date: 20060218
  Serious: Yes (Other)
  Sender: FDA-Public Use
  Company Number: US-JNJFOC-20040900713

PATIENT
  Age: 75 Year
  Sex: Female
  Weight: 70.3075 kg

DRUGS (5)
  1. TOPAMAX [Suspect]
     Indication: MIGRAINE
     Dosage: 25 MG, 2 IN 1 DAY, ORAL
     Route: 048
     Dates: start: 20040618, end: 20040901
  2. ZANOFLEX (TIZANIDINE HYDROCHLORIDE) [Concomitant]
  3. VERAPAMIL [Concomitant]
  4. ZOCOR [Concomitant]
  5. NEURONTIN [Concomitant]

REACTIONS (1)
  - GLAUCOMA [None]
